FAERS Safety Report 7070010-7 (Version None)
Quarter: 2010Q4

REPORT INFORMATION
  Report Type: 
  Country: None (occurrence: None)
  Receive Date: 20101028
  Receipt Date: 20100804
  Transmission Date: 20110411
  Serious: No
  Sender: FDA-Public Use
  Company Number: US-WYE-H16783210

PATIENT
  Sex: Male

DRUGS (1)
  1. ADVIL [Suspect]
     Indication: BACK PAIN
     Dosage: 1-2 CAPSULES DAILY
     Route: 048
     Dates: start: 20100803, end: 20100804

REACTIONS (2)
  - DRUG INEFFECTIVE [None]
  - FLUSHING [None]
